FAERS Safety Report 12361251 (Version 3)
Quarter: 2016Q3

REPORT INFORMATION
  Report Type: Spontaneous
  Country: US (occurrence: US)
  Receive Date: 20160512
  Receipt Date: 20160810
  Transmission Date: 20161109
  Serious: Yes (Other)
  Sender: FDA-Public Use
  Company Number: US-ALEXION PHARMACEUTICALS INC-A201603373

PATIENT
  Age: 25 Year
  Sex: Female
  Weight: 81.9 kg

DRUGS (19)
  1. DECADRON [Suspect]
     Active Substance: DEXAMETHASONE
     Dosage: 20 MG, Q2W
     Route: 048
  2. MULTIVITAMIN                       /07504101/ [Concomitant]
     Active Substance: VITAMINS
     Indication: PRODUCT USED FOR UNKNOWN INDICATION
     Dosage: 1 TAB, QD
     Route: 048
  3. LEVORA-28 [Concomitant]
     Indication: PRODUCT USED FOR UNKNOWN INDICATION
     Dosage: 15-30 MG-MCG, UNK
     Route: 048
  4. CIPRO [Concomitant]
     Active Substance: CIPROFLOXACIN HYDROCHLORIDE
     Indication: PRODUCT USED FOR UNKNOWN INDICATION
     Dosage: 500 MG, UNK
     Route: 048
  5. SOLIRIS [Suspect]
     Active Substance: ECULIZUMAB
     Indication: PAROXYSMAL NOCTURNAL HAEMOGLOBINURIA
     Dosage: UNK
     Route: 042
     Dates: start: 20140612
  6. SOLIRIS [Suspect]
     Active Substance: ECULIZUMAB
     Dosage: 1500 MG, Q2W
     Route: 042
  7. CYCLOSPORINE. [Concomitant]
     Active Substance: CYCLOSPORINE
     Dosage: 200 MG, BID
     Route: 065
     Dates: end: 201602
  8. EMLA [Concomitant]
     Active Substance: LIDOCAINE\PRILOCAINE
     Indication: PAIN
     Dosage: UNK, PRN
     Route: 061
  9. SOLIRIS [Suspect]
     Active Substance: ECULIZUMAB
     Dosage: 900 MG, Q2W
     Route: 042
  10. DECADRON [Suspect]
     Active Substance: DEXAMETHASONE
     Indication: IMMUNOSUPPRESSION
     Dosage: 20 MG, QD
     Route: 048
  11. SOLIRIS [Suspect]
     Active Substance: ECULIZUMAB
     Dosage: 1200 MG, Q2W
     Route: 042
  12. FOLVITE                            /00024201/ [Concomitant]
     Indication: PRODUCT USED FOR UNKNOWN INDICATION
     Dosage: 1 TAB, QD
     Route: 048
  13. HEPARIN [Concomitant]
     Active Substance: HEPARIN SODIUM
     Indication: PRODUCT USED FOR UNKNOWN INDICATION
     Dosage: 500 UNITS, PRN
     Route: 042
  14. SOLIRIS [Suspect]
     Active Substance: ECULIZUMAB
     Dosage: 900 MG, Q2W
     Route: 042
  15. VITAMIN B12 [Concomitant]
     Active Substance: CYANOCOBALAMIN
     Indication: PRODUCT USED FOR UNKNOWN INDICATION
     Dosage: 1000 ?G, QD
     Route: 048
  16. CYCLOSPORINE. [Concomitant]
     Active Substance: CYCLOSPORINE
     Indication: PAROXYSMAL NOCTURNAL HAEMOGLOBINURIA
     Dosage: 100 MG, BID
     Route: 065
     Dates: start: 201504
  17. SOLIRIS [Suspect]
     Active Substance: ECULIZUMAB
     Dosage: 900 MG, Q2W
     Route: 042
  18. FERROUS SULFATE. [Concomitant]
     Active Substance: FERROUS SULFATE
     Indication: PRODUCT USED FOR UNKNOWN INDICATION
     Dosage: UNK
     Route: 048
  19. ZOFRAN [Concomitant]
     Active Substance: ONDANSETRON HYDROCHLORIDE
     Indication: PRODUCT USED FOR UNKNOWN INDICATION
     Dosage: 4 MG, UNK
     Route: 048

REACTIONS (18)
  - Aplastic anaemia [Unknown]
  - Leukopenia [Unknown]
  - Anaemia [Unknown]
  - Alanine aminotransferase increased [Unknown]
  - Dizziness [Not Recovered/Not Resolved]
  - Serum ferritin increased [Unknown]
  - Dyspnoea exertional [Unknown]
  - Full blood count abnormal [Unknown]
  - Headache [Recovered/Resolved]
  - Blood lactate dehydrogenase increased [Unknown]
  - Nausea [Recovered/Resolved]
  - Vitamin B12 deficiency [Recovered/Resolved]
  - Menorrhagia [Recovered/Resolved]
  - Aspartate aminotransferase increased [Unknown]
  - Condition aggravated [Unknown]
  - Drug intolerance [Unknown]
  - Fatigue [Unknown]
  - Incorrect dose administered [Not Recovered/Not Resolved]

NARRATIVE: CASE EVENT DATE: 20150108
